FAERS Safety Report 10562400 (Version 12)
Quarter: 2018Q1

REPORT INFORMATION
  Report Type: Report from Study
  Country: BR (occurrence: BR)
  Receive Date: 20141104
  Receipt Date: 20180215
  Transmission Date: 20180508
  Serious: Yes (Life-Threatening, Hospitalization, Other)
  Sender: FDA-Public Use
  Company Number: PHHY2014BR143093

PATIENT
  Age: 13 Year
  Sex: Male
  Weight: 42 kg

DRUGS (4)
  1. EXJADE [Suspect]
     Active Substance: DEFERASIROX
     Indication: IRON OVERLOAD
     Dosage: 500 MG, QD, (28 TABLETS)
     Route: 048
     Dates: start: 201412
  2. EXJADE [Suspect]
     Active Substance: DEFERASIROX
     Dosage: 500 MG, QD (1TABLET PER DAY)
     Route: 048
     Dates: start: 201503, end: 20161206
  3. HYDROXYUREA. [Concomitant]
     Active Substance: HYDROXYUREA
     Indication: SICKLE CELL ANAEMIA
     Dosage: 1 TABLET / DAY DURING THE WEEK AND 2 TABLETS / DAY ON SATURDAY AND SUNDAY
     Route: 048
  4. FOLIC ACID. [Concomitant]
     Active Substance: FOLIC ACID
     Indication: SICKLE CELL ANAEMIA
     Dosage: 1 DF, QW3
     Route: 048

REACTIONS (20)
  - Vomiting [Recovered/Resolved]
  - Asthenia [Recovered/Resolved]
  - Rash papular [Recovered/Resolved]
  - Abdominal pain [Recovered/Resolved]
  - Lethargy [Recovered/Resolved]
  - Odynophagia [Unknown]
  - Musculoskeletal chest pain [Recovered/Resolved]
  - Bacterial infection [Recovered/Resolved]
  - Abdominal pain upper [Recovered/Resolved]
  - Liver function test abnormal [Unknown]
  - Atrial tachycardia [Recovered/Resolved]
  - Hypersensitivity [Recovered/Resolved]
  - Pneumonia [Unknown]
  - Pain [Recovered/Resolved]
  - Pyrexia [Recovered/Resolved]
  - Mass [Unknown]
  - Apparent death [Unknown]
  - Malaise [Unknown]
  - Headache [Not Recovered/Not Resolved]
  - Concomitant disease aggravated [Unknown]

NARRATIVE: CASE EVENT DATE: 20151029
